FAERS Safety Report 5581834-7 (Version None)
Quarter: 2008Q1

REPORT INFORMATION
  Report Type: 
  Country: None (occurrence: None)
  Receive Date: 20080104
  Receipt Date: 20071225
  Transmission Date: 20080703
  Serious: Yes (Other)
  Sender: FDA-Public Use
  Company Number: JP-PFIZER INC-2007106080

PATIENT
  Sex: Female
  Weight: 63.5 kg

DRUGS (4)
  1. LIPITOR [Suspect]
     Indication: HYPERCHOLESTEROLAEMIA
     Route: 048
  2. ENALAPRIL MALEATE [Concomitant]
     Route: 048
  3. ADALAT [Concomitant]
     Route: 048
  4. PANTOSIN [Concomitant]
     Route: 048

REACTIONS (4)
  - DIABETES MELLITUS [None]
  - IMMUNE SYSTEM DISORDER [None]
  - LICHEN PLANUS [None]
  - STOMATITIS [None]
